FAERS Safety Report 17913753 (Version 5)
Quarter: 2022Q4

REPORT INFORMATION
  Report Type: Spontaneous
  Country: US (occurrence: US)
  Receive Date: 20200618
  Receipt Date: 20221103
  Transmission Date: 20230113
  Serious: Yes (Other)
  Sender: FDA-Public Use
  Company Number: US-PFIZER INC-2020104866

PATIENT
  Age: 11 Year
  Sex: Male

DRUGS (5)
  1. GENOTROPIN [Suspect]
     Active Substance: SOMATROPIN
     Indication: Hormone therapy
     Dosage: 1.2 MG, ALTERNATE DAY (ALTERNATE 1.2 MG AND 1.4 MG DAILY)
     Dates: start: 201811
  2. GENOTROPIN [Suspect]
     Active Substance: SOMATROPIN
     Dosage: 1.4 MG, ALTERNATE DAY (ALTERNATE 1.2 MG AND 1.4 MG DAILY)
     Dates: start: 201811
  3. GENOTROPIN [Suspect]
     Active Substance: SOMATROPIN
     Dosage: 1.7 MG, DAILY
     Dates: start: 20181220, end: 202110
  4. GENOTROPIN [Suspect]
     Active Substance: SOMATROPIN
     Dosage: 2 MG
     Dates: start: 202110, end: 202112
  5. GENOTROPIN [Suspect]
     Active Substance: SOMATROPIN
     Dosage: 1.6 MG ALTERNATE WITH 1.8 MG DAILY

REACTIONS (6)
  - Tonsillar hypertrophy [Recovered/Resolved]
  - Sleep disorder [Unknown]
  - Snoring [Unknown]
  - Polydipsia [Unknown]
  - Product prescribing error [Unknown]
  - Product dose omission issue [Unknown]

NARRATIVE: CASE EVENT DATE: 20181220
